FAERS Safety Report 18160155 (Version 3)
Quarter: 2020Q3

REPORT INFORMATION
  Report Type: Spontaneous
  Country: AU (occurrence: AU)
  Receive Date: 20200818
  Receipt Date: 20200928
  Transmission Date: 20201103
  Serious: Yes (Other)
  Sender: FDA-Public Use
  Company Number: AU-LUPIN HEALTHCARE (UK) LIMITED-2020-04486

PATIENT
  Sex: Female
  Weight: 58 kg

DRUGS (1)
  1. LEVONORGESTREL?1 GH TABLET [Suspect]
     Active Substance: LEVONORGESTREL
     Indication: CONTRACEPTION
     Dosage: UNK
     Route: 065

REACTIONS (1)
  - Pregnancy on contraceptive [Unknown]
